FAERS Safety Report 6033402-0 (Version None)
Quarter: 2009Q1

REPORT INFORMATION
  Report Type: 
  Country: None (occurrence: None)
  Receive Date: 20090107
  Receipt Date: 20080306
  Transmission Date: 20090719
  Serious: Yes (Hospitalization, Other)
  Sender: FDA-Public Use
  Company Number: 45968

PATIENT
  Age: 53 Year
  Sex: Female

DRUGS (1)
  1. VINORELBINE TARTRATE [Suspect]
     Indication: BREAST CANCER METASTATIC
     Dosage: 28MG IV (FIRST DOSE) AND 29MG IV (LAST DOSE)
     Route: 042
     Dates: start: 20050826

REACTIONS (1)
  - SEPSIS [None]
